FAERS Safety Report 5236410-2 (Version None)
Quarter: 2007Q1

REPORT INFORMATION
  Report Type: 
  Country: None (occurrence: None)
  Receive Date: 20070212
  Receipt Date: 20070131
  Transmission Date: 20070707
  Serious: Yes (Other)
  Sender: FDA-Public Use
  Company Number: US-PFIZER INC-2007009402

PATIENT
  Sex: Female

DRUGS (5)
  1. LYRICA [Suspect]
     Indication: NEURALGIA
  2. ANTIDEPRESSANTS [Suspect]
  3. ALL OTHER THERAPEUTIC PRODUCTS [Concomitant]
     Route: 062
  4. PARACETAMOL [Concomitant]
  5. CODEINE [Concomitant]

REACTIONS (8)
  - ANXIETY [None]
  - DEPRESSION [None]
  - DIZZINESS [None]
  - DRUG INEFFECTIVE [None]
  - DYSPNOEA [None]
  - NAUSEA [None]
  - PAIN IN EXTREMITY [None]
  - TACHYCARDIA [None]
